FAERS Safety Report 16868898 (Version 1)
Quarter: 2019Q3

REPORT INFORMATION
  Report Type: Spontaneous
  Country: US (occurrence: US)
  Receive Date: 20190930
  Receipt Date: 20190930
  Transmission Date: 20191005
  Serious: Yes (Other)
  Sender: FDA-Public Use
  Company Number: US-PFIZER INC-2019415630

PATIENT
  Age: 57 Year
  Sex: Male
  Weight: 86.17 kg

DRUGS (3)
  1. WARFARIN [Suspect]
     Active Substance: WARFARIN
     Dosage: 5 MG, UNK (SOME DAYS YOU TAKE A HALF A TABLET AND THEN SOME DAYS YOU TAKE A WHOLE TABLET)
  2. WARFARIN [Suspect]
     Active Substance: WARFARIN
     Indication: ANTICOAGULANT THERAPY
     Dosage: UNK, 1X/DAY (ONCE A DAY AT 6 ^O^ CLOCK)
     Route: 048
  3. FLECTOR [Suspect]
     Active Substance: DICLOFENAC EPOLAMINE
     Dosage: UNK

REACTIONS (7)
  - Cerebrovascular accident [Unknown]
  - Back disorder [Unknown]
  - Cardiac disorder [Unknown]
  - Nerve injury [Unknown]
  - Mitral valve disease [Unknown]
  - Spinal fracture [Unknown]
  - Pain [Unknown]
